FAERS Safety Report 19796778 (Version 2)
Quarter: 2022Q4

REPORT INFORMATION
  Report Type: Spontaneous
  Country: US (occurrence: US)
  Receive Date: 20210907
  Receipt Date: 20221021
  Transmission Date: 20230113
  Serious: Yes (Other)
  Sender: FDA-Public Use
  Company Number: US-MACLEODS PHARMACEUTICALS US LTD-MAC2021029803

PATIENT

DRUGS (2)
  1. LOSARTAN [Suspect]
     Active Substance: LOSARTAN
     Indication: Microalbuminuria
     Dosage: UNK
     Route: 065
     Dates: end: 201910
  2. LOSARTAN [Suspect]
     Active Substance: LOSARTAN
     Indication: Hypertension

REACTIONS (7)
  - Skin ulcer [Recovered/Resolved]
  - Skin mass [Recovered/Resolved]
  - Sprue-like enteropathy [Recovered/Resolved]
  - Hypocalcaemia [Recovered/Resolved]
  - Hypokalaemia [Recovered/Resolved]
  - Hypomagnesaemia [Recovered/Resolved]
  - Hyponatraemia [Recovered/Resolved]
